FAERS Safety Report 8116207-6 (Version None)
Quarter: 2012Q1

REPORT INFORMATION
  Report Type: 
  Country: None (occurrence: None)
  Receive Date: 20120201
  Receipt Date: 20120123
  Transmission Date: 20120608
  Serious: Yes (Hospitalization)
  Sender: FDA-Public Use
  Company Number: 2012SP004073

PATIENT
  Age: 59 Year
  Sex: Female

DRUGS (2)
  1. DESLORATADINE [Suspect]
     Indication: HYPERSENSITIVITY
     Dosage: 5 MG;TID
     Dates: start: 20060101, end: 20111230
  2. DESLORATADINE [Suspect]
     Indication: URTICARIA THERMAL
     Dosage: 5 MG;TID
     Dates: start: 20060101, end: 20111230

REACTIONS (13)
  - DIZZINESS [None]
  - URTICARIA THERMAL [None]
  - VOMITING [None]
  - MALAISE [None]
  - SENSATION OF HEAVINESS [None]
  - ERYTHEMA [None]
  - UNEVALUABLE EVENT [None]
  - BALANCE DISORDER [None]
  - HEADACHE [None]
  - PRODUCT SUBSTITUTION ISSUE [None]
  - NAUSEA [None]
  - DRUG INEFFECTIVE [None]
  - PRODUCT QUALITY ISSUE [None]
